FAERS Safety Report 9625556 (Version 1)
Quarter: 2013Q4

REPORT INFORMATION
  Report Type: Spontaneous
  Country: US (occurrence: None)
  Receive Date: 20131015
  Receipt Date: 20131015
  Transmission Date: 20140711
  Serious: Yes (Other)
  Sender: FDA-Public Use
  Company Number: None

PATIENT
  Age: 91 Year
  Sex: Male
  Weight: 67.1 kg

DRUGS (1)
  1. DABIGATRAN [Suspect]
     Indication: ATRIAL FLUTTER
     Route: 048

REACTIONS (4)
  - Diarrhoea [None]
  - Dyspnoea [None]
  - Oesophagitis [None]
  - Gastric haemorrhage [None]
